FAERS Safety Report 17868834 (Version 5)
Quarter: 2024Q3

REPORT INFORMATION
  Report Type: Spontaneous
  Country: IT (occurrence: IT)
  Receive Date: 20200607
  Receipt Date: 20240926
  Transmission Date: 20241016
  Serious: Yes (Life-Threatening, Hospitalization, Other)
  Sender: AUROBINDO
  Company Number: IT-STADA-201337

PATIENT
  Age: 70 Year
  Sex: Male

DRUGS (20)
  1. CINACALCET [Suspect]
     Active Substance: CINACALCET
     Indication: Calciphylaxis
     Dosage: UNK
     Route: 048
  2. PARICALCITOL [Suspect]
     Active Substance: PARICALCITOL
     Indication: Vitamin supplementation
     Dosage: UNK
     Route: 042
  3. PARICALCITOL [Suspect]
     Active Substance: PARICALCITOL
     Indication: Hyperparathyroidism secondary
  4. SEVELAMER [Suspect]
     Active Substance: SEVELAMER
     Indication: Hyperphosphataemia
     Dosage: UNK
     Route: 042
  5. ACENOCOUMAROL [Suspect]
     Active Substance: ACENOCOUMAROL
     Indication: Anticoagulant therapy
     Dosage: UNK
     Route: 048
  6. ACENOCOUMAROL [Suspect]
     Active Substance: ACENOCOUMAROL
     Indication: Vena cava thrombosis
  7. CALCIUM CARBONATE [Suspect]
     Active Substance: CALCIUM CARBONATE
     Indication: Hyperparathyroidism secondary
     Dosage: UNK
     Route: 042
  8. SODIUM BICARBONATE [Suspect]
     Active Substance: SODIUM BICARBONATE
     Indication: Product used for unknown indication
     Dosage: UNK
     Route: 065
  9. SODIUM THIOSULFATE [Suspect]
     Active Substance: SODIUM THIOSULFATE
     Indication: Calciphylaxis
     Dosage: 12.5 GRAM, THRICE WEEKLY
     Route: 042
  10. SODIUM THIOSULFATE [Suspect]
     Active Substance: SODIUM THIOSULFATE
     Dosage: 9 GRAM, THRICE WEEKLY (NINE DOSES)
     Route: 042
  11. SODIUM THIOSULFATE [Suspect]
     Active Substance: SODIUM THIOSULFATE
     Dosage: 200 MILLIGRAM
     Route: 026
  12. ASPIRIN [Concomitant]
     Active Substance: ASPIRIN
     Indication: Vena cava thrombosis
     Dosage: UNK
     Route: 042
  13. BISOPROLOL [Concomitant]
     Active Substance: BISOPROLOL\BISOPROLOL FUMARATE
     Indication: Hypertension
     Dosage: UNK
     Route: 042
  14. CEFAZOLIN [Concomitant]
     Active Substance: CEFAZOLIN
     Indication: Evidence based treatment
     Dosage: UNK
     Route: 065
  15. EPOETIN BETA [Concomitant]
     Active Substance: ERYTHROPOIETIN
     Indication: Product used for unknown indication
     Dosage: UNK
     Route: 042
  16. LEVOFLOXACIN [Concomitant]
     Active Substance: LEVOFLOXACIN
     Indication: Evidence based treatment
     Dosage: UNK
     Route: 065
  17. NIFEDIPINE [Concomitant]
     Active Substance: NIFEDIPINE
     Indication: Hypertension
     Dosage: UNK
     Route: 042
  18. OMEPRAZOLE [Concomitant]
     Active Substance: OMEPRAZOLE
     Indication: Product used for unknown indication
     Dosage: UNK
     Route: 042
  19. SODIUM POLYSTYRENE SULFONATE [Concomitant]
     Active Substance: SODIUM POLYSTYRENE SULFONATE
     Indication: Hyperphosphataemia
     Dosage: UNK
     Route: 065
  20. VANCOMYCIN [Concomitant]
     Active Substance: VANCOMYCIN
     Indication: Evidence based treatment
     Dosage: UNK
     Route: 065

REACTIONS (12)
  - Calciphylaxis [Recovered/Resolved]
  - Electrocardiogram QT prolonged [Recovered/Resolved]
  - Nausea [Not Recovered/Not Resolved]
  - Anion gap [Unknown]
  - Metabolic acidosis [Recovering/Resolving]
  - Pain [Recovering/Resolving]
  - Hypocalcaemia [Recovered/Resolved]
  - Alcohol intolerance [Unknown]
  - Gastrointestinal disorder [Unknown]
  - Infusion site pain [Recovering/Resolving]
  - Off label use [Unknown]
  - Drug intolerance [Unknown]
